FAERS Safety Report 6379456-3 (Version None)
Quarter: 2009Q3

REPORT INFORMATION
  Report Type: 
  Country: None (occurrence: None)
  Receive Date: 20090928
  Receipt Date: 20090923
  Transmission Date: 20100115
  Serious: Yes (Hospitalization)
  Sender: FDA-Public Use
  Company Number: B0589690B

PATIENT
  Sex: Female
  Weight: 68.5 kg

DRUGS (2)
  1. TOPOTECAN [Suspect]
     Route: 042
     Dates: start: 20090730
  2. CARBOPLATIN [Suspect]
     Route: 042
     Dates: start: 20090801

REACTIONS (3)
  - CARDIAC FAILURE [None]
  - INTRACARDIAC THROMBUS [None]
  - PYREXIA [None]
